FAERS Safety Report 20603987 (Version 3)
Quarter: 2022Q2

REPORT INFORMATION
  Report Type: Spontaneous
  Country: US (occurrence: US)
  Receive Date: 20220316
  Receipt Date: 20220517
  Transmission Date: 20220721
  Serious: Yes (Hospitalization, Other)
  Sender: FDA-Public Use
  Company Number: US-009507513-2203USA005224

PATIENT
  Age: 63 Year
  Sex: Male
  Weight: 82.993 kg

DRUGS (14)
  1. KEYTRUDA [Suspect]
     Active Substance: PEMBROLIZUMAB
     Indication: Malignant melanoma
     Dosage: 200 MILLIGRAM, EVERY 21 DAYS
     Dates: start: 20220210, end: 20220225
  2. KEYTRUDA [Suspect]
     Active Substance: PEMBROLIZUMAB
     Dosage: 200 MILLIGRAM, EVERY 21 DAYS
     Dates: start: 20220305
  3. INLYTA [Suspect]
     Active Substance: AXITINIB
     Indication: Malignant melanoma
     Dosage: 5 MILLIGRAM, BID
     Route: 048
     Dates: start: 20220210, end: 20220225
  4. ALLOPURINOL [Concomitant]
     Active Substance: ALLOPURINOL
     Dosage: UNK
     Route: 048
  5. ATORVASTATIN [Concomitant]
     Active Substance: ATORVASTATIN
     Dosage: 1 TABLET (80 MG) DAILY
     Route: 048
  6. CHOLECALCIFEROL [Concomitant]
     Active Substance: CHOLECALCIFEROL
     Dosage: 1 TABLET ONCE DAILY, STRENGTH: 1000 UNIT
     Route: 048
  7. FUROSEMIDE [Concomitant]
     Active Substance: FUROSEMIDE
     Indication: Oedema
     Dosage: 1 TABLET (20 MG) EVERY MORNING AS NEEDED, WHEN TAKING TABLET, TAKE WITH BANANA
     Route: 048
  8. HALOBETASOL PROPIONATE [Concomitant]
     Active Substance: HALOBETASOL PROPIONATE
     Dosage: APPLY TO AFFECTED AREA DAILY
  9. PRINIVIL [Concomitant]
     Active Substance: LISINOPRIL
     Dosage: UNK
     Route: 048
  10. OMEGA 3 FISH OIL [FISH OIL] [Concomitant]
     Route: 048
  11. OMEPRAZOLE [Concomitant]
     Active Substance: OMEPRAZOLE
     Dosage: 1 CAPSULE (20 MG) WITH BREAKFAST AS NEEDED
     Route: 048
  12. OXYCODONE [Concomitant]
     Active Substance: OXYCODONE
     Indication: Pain
     Dosage: 1 TABLET (5 MG) EVERY 6 HOURS AS NEEDED
     Route: 048
  13. DOCUSATE SODIUM\SENNOSIDES A AND B [Concomitant]
     Active Substance: DOCUSATE SODIUM\SENNOSIDES A AND B
     Dosage: 1 TABLET (8.6/50 MG) DAILY
     Route: 048
  14. SODIUM BICARBONATE [Concomitant]
     Active Substance: SODIUM BICARBONATE
     Dosage: 1 TABLET (650 MILLIGRAM) DAILY
     Route: 048

REACTIONS (9)
  - Rhabdomyolysis [Recovered/Resolved]
  - Acute kidney injury [Unknown]
  - Red blood cell count abnormal [Unknown]
  - Haemoglobin abnormal [Unknown]
  - Haematocrit abnormal [Unknown]
  - Liver function test increased [Unknown]
  - Vitamin D deficiency [Unknown]
  - Gout [Unknown]
  - Gastrooesophageal reflux disease [Unknown]

NARRATIVE: CASE EVENT DATE: 20220201
